FAERS Safety Report 4384871-3 (Version None)
Quarter: 2004Q2

REPORT INFORMATION
  Report Type: 
  Country: None (occurrence: None)
  Receive Date: 20040616
  Receipt Date: 20040608
  Transmission Date: 20050107
  Serious: Yes (Hospitalization)
  Sender: FDA-Public Use
  Company Number: 200410252BYL

PATIENT
  Age: 4 Year
  Sex: Female
  Weight: 16 kg

DRUGS (7)
  1. GAMIMUNE N 5% [Suspect]
     Indication: KAWASAKI'S DISEASE
     Dosage: 22.5 G, TOTAL DAILY, INTRAVENO
     Route: 042
     Dates: start: 20040505, end: 20040506
  2. SOLITA-T3 INJECTION [Concomitant]
  3. SEISHOKU [Concomitant]
  4. ASPIRIN [Concomitant]
  5. ASVERIN [Concomitant]
  6. MUCOSAL [Concomitant]
  7. GAMIMUNE N 5% [Suspect]

REACTIONS (4)
  - DYSSTASIA [None]
  - PAIN IN EXTREMITY [None]
  - THROMBOSIS [None]
  - VASCULAR OCCLUSION [None]
